FAERS Safety Report 18928839 (Version 2)
Quarter: 2021Q2

REPORT INFORMATION
  Report Type: Spontaneous
  Country: US (occurrence: US)
  Receive Date: 20210223
  Receipt Date: 20210413
  Transmission Date: 20210717
  Serious: Yes (Other)
  Sender: FDA-Public Use
  Company Number: US-PFIZER INC-2021044261

PATIENT
  Age: 79 Year
  Sex: Female

DRUGS (3)
  1. METHOTREXATE. [Concomitant]
     Active Substance: METHOTREXATE
     Dosage: 6 DF, WEEKLY
  2. XELJANZ XR [Suspect]
     Active Substance: TOFACITINIB CITRATE
     Indication: RHEUMATOID ARTHRITIS
     Dosage: 11 MG, DAILY
     Route: 048
     Dates: start: 20201223
  3. PREDNISONE. [Concomitant]
     Active Substance: PREDNISONE
     Dosage: 5.5 MG, DAILY

REACTIONS (5)
  - Drug ineffective [Unknown]
  - Illness [Unknown]
  - Product dose omission issue [Unknown]
  - Infection [Unknown]
  - Rheumatoid arthritis [Unknown]
